FAERS Safety Report 18916571 (Version 2)
Quarter: 2023Q2

REPORT INFORMATION
  Report Type: Report from Study
  Country: US (occurrence: US)
  Receive Date: 20210219
  Receipt Date: 20230606
  Transmission Date: 20230722
  Serious: Yes (Hospitalization)
  Sender: FDA-Public Use
  Company Number: US-KYOWAKIRIN-2021BKK002473

PATIENT

DRUGS (2)
  1. NOURIANZ [Suspect]
     Active Substance: ISTRADEFYLLINE
     Indication: Parkinson^s disease
     Dosage: 40 MG, QD(DAILY)
     Route: 048
     Dates: start: 20200501
  2. NOURIANZ [Suspect]
     Active Substance: ISTRADEFYLLINE
     Dosage: 40 MG, QD(DAILY)
     Route: 048
     Dates: start: 202007

REACTIONS (3)
  - Shoulder fracture [Not Recovered/Not Resolved]
  - Chronic obstructive pulmonary disease [Unknown]
  - Constipation [Unknown]
